FAERS Safety Report 23259423 (Version 1)
Quarter: 2023Q4

REPORT INFORMATION
  Report Type: Spontaneous
  Country: CN (occurrence: CN)
  Receive Date: 20231204
  Receipt Date: 20231204
  Transmission Date: 20240110
  Serious: Yes (Hospitalization)
  Sender: FDA-Public Use
  Company Number: CN-ABBVIE-5518326

PATIENT
  Age: 54 Year
  Sex: Male
  Weight: 84 kg

DRUGS (3)
  1. VENETOCLAX [Suspect]
     Active Substance: VENETOCLAX
     Indication: Chemotherapy
     Dosage: 100 MILLIGRAM
     Route: 048
     Dates: start: 20231019, end: 20231025
  2. AZACITIDINE [Suspect]
     Active Substance: AZACITIDINE
     Indication: Chemotherapy
     Dosage: 100 MILLIGRAM
     Route: 065
     Dates: start: 20231022, end: 20231025
  3. AZACITIDINE [Suspect]
     Active Substance: AZACITIDINE
     Indication: Chemotherapy
     Dosage: 200 MILLIGRAM
     Route: 065
     Dates: start: 20231019, end: 20231021

REACTIONS (1)
  - Myelosuppression [Not Recovered/Not Resolved]

NARRATIVE: CASE EVENT DATE: 20231115
